FAERS Safety Report 15283255 (Version 1)
Quarter: 2018Q4

REPORT INFORMATION
  Report Type: Spontaneous
  Country: US (occurrence: US)
  Receive Date: 20180816
  Receipt Date: 20180816
  Transmission Date: 20190204
  Serious: No
  Sender: FDA-Public Use
  Company Number: US-TEVA-2018-US-941336

PATIENT
  Sex: Male

DRUGS (1)
  1. GABAPTAB-A [Suspect]
     Active Substance: GABAPENTIN
     Dosage: 1800 MILLIGRAM DAILY;

REACTIONS (1)
  - Drug ineffective [Unknown]
